FAERS Safety Report 5307226-3 (Version None)
Quarter: 2007Q1

REPORT INFORMATION
  Report Type: 
  Country: None (occurrence: None)
  Receive Date: 20070201
  Receipt Date: 20061205
  Transmission Date: 20070707
  Serious: No
  Sender: FDA-Public Use
  Company Number: 2006PV026380

PATIENT
  Age: 70 Year
  Sex: Male
  Weight: 134.7183 kg

DRUGS (6)
  1. BYETTA [Suspect]
     Indication: DIABETES MELLITUS NON-INSULIN-DEPENDENT
     Dosage: 5 MCG; BID; SC
     Route: 058
     Dates: start: 20061130
  2. AVANDIA [Concomitant]
  3. HUMULIN R [Concomitant]
  4. HUMULIN N [Concomitant]
  5. LASIX [Concomitant]
  6. ZAROXOLYN [Concomitant]

REACTIONS (2)
  - BLOOD GLUCOSE ABNORMAL [None]
  - DRUG INEFFECTIVE [None]
